FAERS Safety Report 9845155 (Version 1)
Quarter: 2014Q1

REPORT INFORMATION
  Report Type: Spontaneous
  Country: PR (occurrence: PR)
  Receive Date: 20140127
  Receipt Date: 20140127
  Transmission Date: 20141002
  Serious: Yes (Other)
  Sender: FDA-Public Use
  Company Number: PR-MALLINCKRODT-T201401009

PATIENT
  Age: 29 Year
  Sex: Male

DRUGS (1)
  1. OPTIRAY [Suspect]
     Indication: COMPUTERISED TOMOGRAM
     Dosage: 125 ML, SINGLE, 2.5 ML/HR
     Route: 042
     Dates: start: 20140106, end: 20140106

REACTIONS (3)
  - Bronchospasm [Recovered/Resolved]
  - Laryngospasm [Recovered/Resolved]
  - Pruritus [Recovered/Resolved]
